FAERS Safety Report 12156068 (Version 1)
Quarter: 2016Q1

REPORT INFORMATION
  Report Type: Spontaneous
  Country: US (occurrence: US)
  Receive Date: 20160307
  Receipt Date: 20160307
  Transmission Date: 20160526
  Serious: Yes (Hospitalization)
  Sender: FDA-Public Use
  Company Number: US-BIOGEN-2016BI00196172

PATIENT
  Sex: Female

DRUGS (2)
  1. AVONEX [Suspect]
     Active Substance: INTERFERON BETA-1A
     Indication: MULTIPLE SCLEROSIS
     Route: 065
     Dates: start: 20110801
  2. TECFIDERA [Suspect]
     Active Substance: DIMETHYL FUMARATE
     Indication: MULTIPLE SCLEROSIS
     Route: 065
     Dates: start: 20150310

REACTIONS (25)
  - Rib fracture [Recovered/Resolved]
  - Facial bones fracture [Recovered/Resolved]
  - Fear [Unknown]
  - Post-traumatic stress disorder [Unknown]
  - Dysgraphia [Unknown]
  - Balance disorder [Unknown]
  - Depressed level of consciousness [Unknown]
  - General symptom [Unknown]
  - Insomnia [Unknown]
  - Drowning [Recovered/Resolved]
  - Stress [Unknown]
  - Vein disorder [Unknown]
  - Visual impairment [Unknown]
  - Stab wound [Recovered/Resolved]
  - Nightmare [Unknown]
  - Ankle fracture [Unknown]
  - Amnesia [Unknown]
  - Asphyxia [Recovered/Resolved]
  - Multiple sclerosis relapse [Unknown]
  - Flushing [Unknown]
  - Tremor [Unknown]
  - Fall [Recovered/Resolved]
  - Ligament sprain [Unknown]
  - Gait disturbance [Unknown]
  - Fatigue [Unknown]
